FAERS Safety Report 14067091 (Version 1)
Quarter: 2017Q4

REPORT INFORMATION
  Report Type: Spontaneous
  Country: US (occurrence: US)
  Receive Date: 20171010
  Receipt Date: 20171010
  Transmission Date: 20180321
  Serious: No
  Sender: FDA-Public Use
  Company Number: US-BIOGEN-2017BI00469087

PATIENT
  Sex: Female

DRUGS (1)
  1. TECFIDERA [Suspect]
     Active Substance: DIMETHYL FUMARATE
     Indication: MULTIPLE SCLEROSIS
     Route: 065

REACTIONS (7)
  - Paraesthesia [Unknown]
  - Back pain [Unknown]
  - Mood altered [Unknown]
  - Dizziness [Unknown]
  - Neck pain [Unknown]
  - Balance disorder [Unknown]
  - Hypoaesthesia [Unknown]
